FAERS Safety Report 14881241 (Version 1)
Quarter: 2018Q2

REPORT INFORMATION
  Report Type: Report from Study
  Country: FR (occurrence: FR)
  Receive Date: 20180511
  Receipt Date: 20180511
  Transmission Date: 20180711
  Serious: Yes (Other)
  Sender: FDA-Public Use
  Company Number: FR-ROCHE-2117981

PATIENT

DRUGS (2)
  1. VEMURAFENIB. [Suspect]
     Active Substance: VEMURAFENIB
     Indication: METASTATIC MALIGNANT MELANOMA
     Dosage: PER DAY
     Route: 065
  2. DABRAFENIB [Suspect]
     Active Substance: DABRAFENIB
     Indication: METASTATIC MALIGNANT MELANOMA
     Dosage: PER DAY
     Route: 065

REACTIONS (12)
  - Squamous cell carcinoma [Unknown]
  - Skin papilloma [Unknown]
  - Photosensitivity reaction [Unknown]
  - Alopecia [Unknown]
  - Hepatic enzyme increased [Unknown]
  - Basal cell carcinoma [Unknown]
  - Asthenia [Unknown]
  - Palmoplantar keratoderma [Unknown]
  - Tubulointerstitial nephritis [Unknown]
  - Interstitial lung disease [Unknown]
  - Keratosis pilaris [Unknown]
  - Uveitis [Unknown]
